FAERS Safety Report 8984705 (Version 2)
Quarter: 2012Q4

REPORT INFORMATION
  Report Type: 
  Country: BR (occurrence: BR)
  Receive Date: 20121226
  Receipt Date: 20121231
  Transmission Date: 20130627
  Serious: Yes (Hospitalization, Other)
  Sender: FDA-Public Use
  Company Number: PHHY2012BR119389

PATIENT
  Sex: Female
  Weight: 45 kg

DRUGS (6)
  1. DIOVAN HCT [Suspect]
     Indication: HYPERTENSION
     Dosage: 1 DF, daily (160 mg vals and 12.5 mg hctz)
     Route: 048
  2. DIOVAN HCT [Suspect]
     Dosage: 1 DF (320/12.5 mg), Daily
     Route: 048
  3. SOMALGIN [Concomitant]
     Dosage: 85 mg, Daily
     Route: 048
  4. SUSTRATE [Concomitant]
     Dosage: 3 DF (10 mg), Daily
     Route: 048
     Dates: start: 20121220
  5. SELOZOK [Concomitant]
     Dosage: 100 mg, Daily
     Route: 048
     Dates: start: 20121220
  6. VASTAREL [Concomitant]
     Dosage: 35 mg, Daily
     Route: 048
     Dates: start: 20121220

REACTIONS (1)
  - Infarction [Recovered/Resolved]
